FAERS Safety Report 7067564-3 (Version None)
Quarter: 2010Q4

REPORT INFORMATION
  Report Type: 
  Country: None (occurrence: None)
  Receive Date: 20101019
  Receipt Date: 20101013
  Transmission Date: 20110411
  Serious: Yes (Other)
  Sender: FDA-Public Use
  Company Number: A0878649A

PATIENT
  Age: 15 Year
  Sex: Female

DRUGS (1)
  1. BENZOYL PEROXIDE FOAM (BENZOYL PEROXIDE) [Suspect]
     Dosage: TOPICAL
     Route: 061

REACTIONS (4)
  - ACCIDENTAL EXPOSURE [None]
  - EYE IRRITATION [None]
  - KERATITIS [None]
  - OCULAR HYPERAEMIA [None]
